FAERS Safety Report 9744460 (Version 1)
Quarter: 2013Q4

REPORT INFORMATION
  Report Type: Spontaneous
  Country: US (occurrence: US)
  Receive Date: 20131210
  Receipt Date: 20131210
  Transmission Date: 20140711
  Serious: Yes (Other)
  Sender: FDA-Public Use
  Company Number: US-ACTAVIS-2013-22268

PATIENT
  Age: 61 Year
  Sex: Female

DRUGS (8)
  1. DOXORUBICIN (UNKNOWN) [Suspect]
     Indication: OVARIAN CANCER RECURRENT
     Dosage: UNK
     Route: 065
     Dates: start: 200710, end: 200902
  2. DOXORUBICIN (UNKNOWN) [Suspect]
     Dosage: 6 CYCLES
     Route: 065
  3. CARBOPLATIN (WATSON LABORATORIES) [Suspect]
     Indication: OVARIAN CANCER RECURRENT
     Dosage: 6 CYCLES
     Route: 065
  4. CARBOPLATIN (WATSON LABORATORIES) [Suspect]
     Dosage: UNK
     Route: 065
  5. PACLITAXEL (ATLLC) (PACLITAXEL) UNK, UNKUNK [Suspect]
     Indication: OVARIAN CANCER RECURRENT
     Dosage: UNK
     Route: 065
  6. GEMCITABINE (ATLLC) [Suspect]
     Indication: OVARIAN CANCER RECURRENT
     Dosage: UNK
     Route: 065
  7. TOPOTECAN (ATLLC) [Suspect]
     Indication: OVARIAN CANCER RECURRENT
     Dosage: UNK
     Route: 065
  8. ETOPOSIDE (WATSON LABORATORIES) [Suspect]
     Indication: OVARIAN CANCER RECURRENT
     Dosage: UNK
     Route: 065

REACTIONS (2)
  - Renal failure chronic [Recovering/Resolving]
  - Hypertension [Recovering/Resolving]
